FAERS Safety Report 16756533 (Version 2)
Quarter: 2019Q3

REPORT INFORMATION
  Report Type: Report from Study
  Country: RO (occurrence: RO)
  Receive Date: 20190829
  Receipt Date: 20190913
  Transmission Date: 20191005
  Serious: Yes (Hospitalization, Other)
  Sender: FDA-Public Use
  Company Number: RO-JNJFOC-20190834989

PATIENT
  Age: 80 Year
  Sex: Male

DRUGS (3)
  1. RYTMONORM [Concomitant]
     Active Substance: PROPAFENONE
  2. RIVAROXABAN [Suspect]
     Active Substance: RIVAROXABAN
     Indication: PERIPHERAL ARTERY OCCLUSION
     Dosage: 2.5 MG, BID
     Route: 048
     Dates: start: 201906, end: 201907
  3. SPIRONOLACTONA [Concomitant]
     Active Substance: SPIRONOLACTONE

REACTIONS (5)
  - Fluid retention [Unknown]
  - Pleurisy [Unknown]
  - Dyspnoea [Unknown]
  - Renal failure [Unknown]
  - Cardiac failure [Unknown]

NARRATIVE: CASE EVENT DATE: 201906
